FAERS Safety Report 20049951 (Version 1)
Quarter: 2021Q4

REPORT INFORMATION
  Report Type: Spontaneous
  Country: US (occurrence: None)
  Receive Date: 20211108
  Receipt Date: 20211108
  Transmission Date: 20220303
  Serious: Yes (Death)
  Sender: FDA-Public Use
  Company Number: None

PATIENT
  Age: 75 Year
  Sex: Female

DRUGS (2)
  1. ESBRIET [Suspect]
     Active Substance: PIRFENIDONE
     Indication: Idiopathic pulmonary fibrosis
     Dosage: FREQUENCY : TWICE A DAY;?
     Route: 048
     Dates: start: 20190605
  2. MAGNESIUM TAB 30MG [Concomitant]

REACTIONS (4)
  - General physical health deterioration [None]
  - Therapy interrupted [None]
  - Dysphagia [None]
  - Feeding disorder [None]

NARRATIVE: CASE EVENT DATE: 20211104
